FAERS Safety Report 6385662-4 (Version None)
Quarter: 2009Q4

REPORT INFORMATION
  Report Type: 
  Country: None (occurrence: None)
  Receive Date: 20091002
  Receipt Date: 20081020
  Transmission Date: 20100525
  Serious: No
  Sender: FDA-Public Use
  Company Number: US-ASTRAZENECA-2008UW23160

PATIENT
  Age: 61 Year
  Sex: Female
  Weight: 73.5 kg

DRUGS (6)
  1. ARIMIDEX [Suspect]
     Indication: BREAST CANCER
     Dosage: UNKNOWN
     Route: 048
     Dates: start: 20050501, end: 20070501
  2. ARIMIDEX [Suspect]
     Dosage: UNKNOWN
     Route: 048
     Dates: start: 20080401
  3. ATENOLOL [Concomitant]
  4. NORVASC [Concomitant]
  5. ZOCOR [Concomitant]
  6. CLARITIN [Concomitant]

REACTIONS (2)
  - BREAST ENLARGEMENT [None]
  - SPIDER NAEVUS [None]
